FAERS Safety Report 24716142 (Version 2)
Quarter: 2025Q1

REPORT INFORMATION
  Report Type: Spontaneous
  Country: GB (occurrence: GB)
  Receive Date: 20241210
  Receipt Date: 20250106
  Transmission Date: 20250409
  Serious: Yes (Other)
  Sender: CSL BEHRING
  Company Number: GB-BEH-2024186925

PATIENT
  Sex: Female

DRUGS (1)
  1. ALBUREX [Suspect]
     Active Substance: ALBUMIN HUMAN
     Route: 065

REACTIONS (5)
  - Mental impairment [Unknown]
  - General physical health deterioration [Unknown]
  - Inflammation [Unknown]
  - Therapy cessation [Unknown]
  - Economic problem [Unknown]
